FAERS Safety Report 6063370-7 (Version None)
Quarter: 2009Q1

REPORT INFORMATION
  Report Type: 
  Country: None (occurrence: None)
  Receive Date: 20090129
  Receipt Date: 20090119
  Transmission Date: 20090719
  Serious: Yes (Death)
  Sender: FDA-Public Use
  Company Number: 156411

PATIENT

DRUGS (1)
  1. TPN ELECTROLYTES IN PLASTIC CONTAINER [Suspect]
     Indication: PARENTERAL NUTRITION
     Dosage: PARENTERAL
     Route: 051

REACTIONS (1)
  - HEPATIC FAILURE [None]
